FAERS Safety Report 6287156-3 (Version None)
Quarter: 2009Q3

REPORT INFORMATION
  Report Type: 
  Country: None (occurrence: None)
  Receive Date: 20090728
  Receipt Date: 20090716
  Transmission Date: 20100115
  Serious: Yes (Hospitalization)
  Sender: FDA-Public Use
  Company Number: FR-ELI_LILLY_AND_COMPANY-FR200907003323

PATIENT
  Sex: Female

DRUGS (3)
  1. PROZAC [Suspect]
     Dosage: 20 MG, UNK
     Route: 048
     Dates: start: 20090330, end: 20090529
  2. HYZAAR [Concomitant]
     Dosage: 1 D/F, DAILY (1/D)
     Route: 048
     Dates: end: 20090529
  3. DILTIAZEM [Concomitant]
     Dosage: 1 D/F, DAILY (1/D)
     Route: 048

REACTIONS (3)
  - FALL [None]
  - HYPONATRAEMIA [None]
  - INJURY [None]
